FAERS Safety Report 16879045 (Version 3)
Quarter: 2019Q4

REPORT INFORMATION
  Report Type: Spontaneous
  Country: DE (occurrence: DE)
  Receive Date: 20191002
  Receipt Date: 20191030
  Transmission Date: 20200122
  Serious: Yes (Hospitalization, Other)
  Sender: FDA-Public Use
  Company Number: DE-BIOGEN-2019BI00791162

PATIENT
  Age: 50 Year
  Sex: Female

DRUGS (1)
  1. SPINRAZA [Suspect]
     Active Substance: NUSINERSEN
     Indication: SPINAL MUSCULAR ATROPHY
     Route: 037
     Dates: start: 20170601

REACTIONS (15)
  - Blepharitis [Unknown]
  - Iron deficiency [Recovered/Resolved]
  - Paraesthesia [Unknown]
  - Feeling hot [Unknown]
  - Erysipelas [Recovered/Resolved]
  - Rosacea [Unknown]
  - Feeling cold [Unknown]
  - Folate deficiency [Unknown]
  - Menorrhagia [Unknown]
  - Peripheral swelling [Unknown]
  - Musculoskeletal pain [Unknown]
  - Eczema [Unknown]
  - Haemoglobin decreased [Unknown]
  - Tinnitus [Unknown]
  - Nervous system disorder [Unknown]

NARRATIVE: CASE EVENT DATE: 201812
